FAERS Safety Report 23463547 (Version 4)
Quarter: 2024Q1

REPORT INFORMATION
  Report Type: Report from Study
  Country: ES (occurrence: ES)
  Receive Date: 20240131
  Receipt Date: 20240307
  Transmission Date: 20240410
  Serious: Yes (Hospitalization, Other)
  Sender: FDA-Public Use
  Company Number: ES-BAXTER-2024BAX011546

PATIENT
  Age: 64 Year
  Sex: Male
  Weight: 100.5 kg

DRUGS (47)
  1. CYCLOPHOSPHAMIDE [Suspect]
     Active Substance: CYCLOPHOSPHAMIDE
     Indication: Diffuse large B-cell lymphoma
     Dosage: 1635 MG, EVERY 3 WEEKS
     Route: 042
     Dates: start: 20231220, end: 20240110
  2. CYCLOPHOSPHAMIDE [Suspect]
     Active Substance: CYCLOPHOSPHAMIDE
     Dosage: 1602.75 MG, EVERY 3 WEEKS
     Route: 042
     Dates: start: 20240207
  3. DOXORUBICIN [Suspect]
     Active Substance: DOXORUBICIN
     Indication: Diffuse large B-cell lymphoma
     Dosage: 109 MG, EVERY 3 WEEKS
     Route: 042
     Dates: start: 20231220, end: 20240110
  4. DOXORUBICIN [Suspect]
     Active Substance: DOXORUBICIN
     Dosage: 106.85 MG, EVERY 3 WEEKS
     Route: 042
     Dates: start: 20240207
  5. EPCORITAMAB [Suspect]
     Active Substance: EPCORITAMAB
     Indication: Diffuse large B-cell lymphoma
     Dosage: 0.16 MG PRIMING DOSE: C1, D1, TOTAL
     Route: 058
     Dates: start: 20231220, end: 20231220
  6. EPCORITAMAB [Suspect]
     Active Substance: EPCORITAMAB
     Dosage: 0.8 MG INTERMEDIATE DOSE: C1, D8, TOTAL
     Route: 058
     Dates: start: 20231227, end: 20231227
  7. EPCORITAMAB [Suspect]
     Active Substance: EPCORITAMAB
     Dosage: 48 MG FULL DOSE: C1, D15 AND C2, D1, EVERY 1 WEEKS
     Route: 058
     Dates: start: 20240103, end: 20240110
  8. EPCORITAMAB [Suspect]
     Active Substance: EPCORITAMAB
     Dosage: 48 MG, EVERY 1 WEEKS
     Route: 058
     Dates: start: 20240207
  9. VINCRISTINE [Suspect]
     Active Substance: VINCRISTINE
     Indication: Diffuse large B-cell lymphoma
     Dosage: 2 MG, EVERY 3 WEEKS
     Route: 042
     Dates: start: 20231220, end: 20240110
  10. VINCRISTINE [Suspect]
     Active Substance: VINCRISTINE
     Dosage: 2 MG, EVERY 3 WEEKS
     Route: 042
     Dates: start: 20240207
  11. RITUXIMAB [Suspect]
     Active Substance: RITUXIMAB
     Indication: Diffuse large B-cell lymphoma
     Dosage: 817.5 MG, EVERY 3 WEEKS
     Route: 042
     Dates: start: 20231220, end: 20240110
  12. RITUXIMAB [Suspect]
     Active Substance: RITUXIMAB
     Dosage: 801.375 MG, EVERY 3 WEEKS
     Route: 042
     Dates: start: 20240207
  13. PREDNISONE [Suspect]
     Active Substance: PREDNISONE
     Indication: Diffuse large B-cell lymphoma
     Dosage: 100 MG C1-6, DAY 1-5, EVERY 1 DAYS
     Route: 048
     Dates: start: 20231220, end: 20240114
  14. PREDNISONE [Suspect]
     Active Substance: PREDNISONE
     Dosage: 100 MG C1-6, DAY 1-5, EVERY 1 DAYS
     Route: 048
     Dates: start: 20240207
  15. GEMFIBROZIL [Concomitant]
     Active Substance: GEMFIBROZIL
     Indication: Blood triglycerides abnormal
     Dosage: 900 MG, EVERY 24 HOURS
     Route: 065
     Dates: start: 20230317
  16. ACIDUM ACETYLSALICYLIC [Concomitant]
     Indication: Cardiovascular event prophylaxis
     Dosage: 100 MG, EVERY 24 HOURS
     Route: 065
     Dates: start: 20181106, end: 20240112
  17. LIRAGLUTIDE [Concomitant]
     Active Substance: LIRAGLUTIDE
     Indication: Diabetes mellitus
     Dosage: 6 MG, EVERY 12 HOURS
     Route: 065
     Dates: start: 20230509
  18. METFORMIN [Concomitant]
     Active Substance: METFORMIN HYDROCHLORIDE
     Indication: Diabetes mellitus
     Dosage: 12.5 MG, EVERY 12 HOURS
     Route: 065
     Dates: start: 20210520
  19. EMPAGLIFLOZIN [Concomitant]
     Active Substance: EMPAGLIFLOZIN
     Indication: Diabetes mellitus
     Dosage: 1000 MG, EVERY 12 HOURS
     Route: 065
     Dates: start: 20210520
  20. CLONAZEPAM [Concomitant]
     Active Substance: CLONAZEPAM
     Indication: Muscle spasms
     Dosage: 0.5 MG, EVERY 24 HOURS
     Route: 065
     Dates: start: 20180403
  21. OMEPRAZOLE [Concomitant]
     Active Substance: OMEPRAZOLE
     Indication: Gastritis prophylaxis
     Dosage: 20 MG, EVERY 24 HOURS
     Route: 065
     Dates: start: 20220914
  22. TAMSULOSIN [Concomitant]
     Active Substance: TAMSULOSIN
     Indication: Benign prostatic hyperplasia
     Dosage: 6 MG, EVERY 24 HOURS
     Route: 065
     Dates: start: 20230703
  23. SOLIFENACIN [Concomitant]
     Active Substance: SOLIFENACIN
     Indication: Benign prostatic hyperplasia
     Dosage: 0.5 MG, EVERY 24 HOURS
     Route: 065
     Dates: start: 20230703
  24. TRIMETHOPRIM [Concomitant]
     Active Substance: TRIMETHOPRIM
     Indication: Antifungal prophylaxis
     Dosage: 160 MG, EVERY 3 WEEKS
     Route: 065
     Dates: start: 20231220
  25. SULFAMETHOXAZOLE [Concomitant]
     Active Substance: SULFAMETHOXAZOLE
     Indication: Antifungal prophylaxis
     Dosage: 800 MG, EVERY 3 WEEKS
     Route: 065
     Dates: start: 20231220
  26. INSULIN NOS [Concomitant]
     Active Substance: INSULIN NOS
     Indication: Type 1 diabetes mellitus
     Dosage: 0-12 ML, AS NECESSARY
     Route: 065
     Dates: start: 20231220
  27. DEXCHLORPHENIRAMINE [Concomitant]
     Active Substance: DEXCHLORPHENIRAMINE
     Indication: Chemotherapy side effect prophylaxis
     Dosage: 5 MG, AS NECESSARY
     Route: 065
     Dates: start: 20231220, end: 20240110
  28. DEXCHLORPHENIRAMINE [Concomitant]
     Active Substance: DEXCHLORPHENIRAMINE
     Indication: Chemotherapy side effect prophylaxis
  29. ACETAMINOPHEN [Concomitant]
     Active Substance: ACETAMINOPHEN
     Indication: Chemotherapy side effect prophylaxis
     Dosage: 1 G, AS NECESSARY
     Route: 065
     Dates: start: 20231220
  30. ACETAMINOPHEN [Concomitant]
     Active Substance: ACETAMINOPHEN
     Indication: Chemotherapy side effect prophylaxis
  31. ACETAMINOPHEN [Concomitant]
     Active Substance: ACETAMINOPHEN
     Indication: Pain prophylaxis
  32. ONDANSETRON [Concomitant]
     Active Substance: ONDANSETRON
     Indication: Chemotherapy side effect prophylaxis
     Dosage: 8 MG, TOTAL
     Route: 065
     Dates: start: 20231220, end: 20231220
  33. AMLODIPINE [Concomitant]
     Active Substance: AMLODIPINE BESYLATE
     Indication: Hypertension
     Dosage: 5 MG, AS NECESSARY
     Route: 065
     Dates: start: 20240103, end: 20240119
  34. ACYCLOVIR [Concomitant]
     Active Substance: ACYCLOVIR
     Indication: Infection prophylaxis
     Dosage: 800 MG, EVERY 24 HOURS
     Route: 065
     Dates: start: 20231220, end: 20240114
  35. ACYCLOVIR [Concomitant]
     Active Substance: ACYCLOVIR
     Dosage: 400 MG, EVERY 24 HOURS
     Route: 065
     Dates: start: 20240115
  36. ALLOPURINOL [Concomitant]
     Active Substance: ALLOPURINOL
     Indication: Prophylaxis
     Dosage: 300 MG, EVERY 24 HOURS
     Route: 065
     Dates: start: 20231220, end: 20240109
  37. ALLOPURINOL [Concomitant]
     Active Substance: ALLOPURINOL
     Indication: Prophylaxis
     Dosage: 100 MG, EVERY 24 HOURS
     Route: 065
     Dates: start: 20240110, end: 20240119
  38. CYANOCOBALAMIN [Concomitant]
     Active Substance: CYANOCOBALAMIN
     Indication: Vitamin B12 deficiency
     Dosage: 1 VIAL, EVERY 1 WEEKS
     Route: 065
     Dates: start: 20231220
  39. INSULIN GLARGINE [Concomitant]
     Active Substance: INSULIN GLARGINE
     Indication: Diabetes mellitus
     Dosage: 28 U, EVERY 24 HOURS
     Route: 065
     Dates: start: 20230112, end: 20240114
  40. INSULIN GLARGINE [Concomitant]
     Active Substance: INSULIN GLARGINE
     Dosage: 20 U, EVERY 24 HOURS
     Route: 065
     Dates: start: 20240115
  41. CALCIFEDIOL [Concomitant]
     Active Substance: CALCIFEDIOL
     Indication: Vitamin D deficiency
     Dosage: 0.266 MG, EVERY 4 WEEKS
     Route: 065
     Dates: start: 20231220
  42. PREDNISONE [Concomitant]
     Active Substance: PREDNISONE
     Indication: Prophylaxis
     Dosage: 100 MG, EVERY 24 HOURS
     Route: 065
     Dates: start: 20231227
  43. ENOXAPARIN [Concomitant]
     Active Substance: ENOXAPARIN
     Indication: Thrombosis prophylaxis
     Dosage: 40 MG, EVERY 24 HOURS
     Route: 065
     Dates: start: 20240103
  44. FUROSEMIDE [Concomitant]
     Active Substance: FUROSEMIDE
     Indication: Oedema
     Dosage: 40 MG, EVERY 24 HOURS
     Route: 065
     Dates: start: 20240103
  45. FUROSEMIDE [Concomitant]
     Active Substance: FUROSEMIDE
     Indication: Oedema peripheral
  46. FILGRASTIM [Concomitant]
     Active Substance: FILGRASTIM
     Indication: Prophylaxis
     Dosage: 48 UG, EVERY 24 HOURS
     Route: 065
     Dates: start: 20231226
  47. FILGRASTIM [Concomitant]
     Active Substance: FILGRASTIM
     Indication: Neutropenia

REACTIONS (3)
  - Hypofibrinogenaemia [Recovered/Resolved]
  - Cytokine release syndrome [Recovered/Resolved]
  - Pneumonia haemophilus [Recovered/Resolved]

NARRATIVE: CASE EVENT DATE: 20240104
